FAERS Safety Report 7298940-1 (Version None)
Quarter: 2011Q1

REPORT INFORMATION
  Report Type: 
  Country: None (occurrence: None)
  Receive Date: 20110217
  Receipt Date: 20110214
  Transmission Date: 20110831
  Serious: Yes (Life-Threatening, Hospitalization)
  Sender: FDA-Public Use
  Company Number: PHFR2010GB05802

PATIENT
  Sex: Female

DRUGS (2)
  1. CLOZARIL [Suspect]
     Indication: SCHIZOPHRENIA
     Dosage: UNK MG, UNK
     Route: 048
     Dates: start: 20071025
  2. CLOZARIL [Suspect]
     Dosage: 100 MG, BID
     Route: 048
     Dates: start: 20110101

REACTIONS (5)
  - HAEMATOMA [None]
  - WHITE BLOOD CELL COUNT DECREASED [None]
  - H1N1 INFLUENZA [None]
  - MALAISE [None]
  - WHITE BLOOD CELL COUNT INCREASED [None]
